FAERS Safety Report 8833686 (Version 1)
Quarter: 2012Q4

REPORT INFORMATION
  Report Type: 
  Country: FR (occurrence: FR)
  Receive Date: 20121010
  Receipt Date: 20121010
  Transmission Date: 20130627
  Serious: Yes (Hospitalization)
  Sender: FDA-Public Use
  Company Number: FR-UCBSA-068291

PATIENT
  Sex: Male

DRUGS (3)
  1. VIMPAT [Suspect]
     Indication: EPILEPSY
     Route: 048
  2. LAMICTAL [Concomitant]
     Indication: EPILEPSY
  3. LAMICTAL [Concomitant]
     Indication: EPILEPSY

REACTIONS (2)
  - Dizziness [Recovered/Resolved]
  - Malaise [Recovered/Resolved]
